FAERS Safety Report 11450282 (Version 1)
Quarter: 2015Q3

REPORT INFORMATION
  Report Type: Spontaneous
  Country: US (occurrence: US)
  Receive Date: 20150903
  Receipt Date: 20150903
  Transmission Date: 20151125
  Serious: No
  Sender: FDA-Public Use
  Company Number: US-ROCHE-1019470

PATIENT
  Sex: Male

DRUGS (3)
  1. TELAPREVIR [Suspect]
     Active Substance: TELAPREVIR
     Indication: HEPATITIS C
     Route: 065
     Dates: start: 20111007
  2. PEGASYS [Suspect]
     Active Substance: PEGINTERFERON ALFA-2A
     Indication: HEPATITIS C
     Route: 065
     Dates: start: 20111007
  3. RIBASPHERE [Suspect]
     Active Substance: RIBAVIRIN
     Indication: HEPATITIS C
     Dosage: DIIDED DOSES
     Route: 048
     Dates: start: 20111007

REACTIONS (7)
  - Dysphagia [Unknown]
  - Haemorrhoidal haemorrhage [Unknown]
  - Cough [Unknown]
  - Blood potassium decreased [Unknown]
  - Blood uric acid increased [Unknown]
  - Haematospermia [Unknown]
  - White blood cell count decreased [Unknown]
